FAERS Safety Report 14198065 (Version 2)
Quarter: 2017Q4

REPORT INFORMATION
  Report Type: Spontaneous
  Country: US (occurrence: US)
  Receive Date: 20171117
  Receipt Date: 20171201
  Transmission Date: 20180321
  Serious: Yes (Death, Hospitalization)
  Sender: FDA-Public Use
  Company Number: US-TAIHO ONCOLOGY INC-EU-2017-01413

PATIENT
  Age: 67 Year
  Sex: Male
  Weight: 109.87 kg

DRUGS (13)
  1. LISINOPRIL. [Concomitant]
     Active Substance: LISINOPRIL
     Dosage: NI
  2. ALBUTEROL. [Concomitant]
     Active Substance: ALBUTEROL
     Dosage: NI
  3. ACETYLSALICYLIC ACID [Concomitant]
     Active Substance: ASPIRIN
     Dosage: LOW DOSE
  4. DOXAZOSIN [Concomitant]
     Active Substance: DOXAZOSIN\DOXAZOSIN MESYLATE
     Dosage: NI
  5. LONSURF [Suspect]
     Active Substance: TIPIRACIL HYDROCHLORIDE\TRIFLURIDINE
     Indication: COLON CANCER METASTATIC
     Dosage: CYCLE 1
     Route: 048
     Dates: start: 20170808, end: 20170905
  6. PARACETAMOL [Concomitant]
     Active Substance: ACETAMINOPHEN
     Dosage: NI
  7. CALCIUM CARBONATE. [Concomitant]
     Active Substance: CALCIUM CARBONATE
     Dosage: NI
  8. LOPERAMIDE [Concomitant]
     Active Substance: LOPERAMIDE
     Dosage: NI
  9. OXYCODONE [Concomitant]
     Active Substance: OXYCODONE
     Dosage: NI
  10. DEXAMETHASONE. [Concomitant]
     Active Substance: DEXAMETHASONE
     Dosage: NI
  11. ATROPINE SULFATE/DIPHENOXYLATE HYDROCHLORIDE [Concomitant]
     Dosage: NI
  12. PROCHLORPERAZINE. [Concomitant]
     Active Substance: PROCHLORPERAZINE
     Dosage: NI
  13. AMLODIPINE [Concomitant]
     Active Substance: AMLODIPINE BESYLATE
     Dosage: NI

REACTIONS (4)
  - Respiratory failure [Fatal]
  - Breakthrough pain [Unknown]
  - Small intestinal obstruction [Unknown]
  - Disease progression [Unknown]

NARRATIVE: CASE EVENT DATE: 20171023
